FAERS Safety Report 26071721 (Version 1)
Quarter: 2025Q4

REPORT INFORMATION
  Report Type: Spontaneous
  Country: EU (occurrence: EU)
  Receive Date: 20251120
  Receipt Date: 20251120
  Transmission Date: 20260118
  Serious: Yes (Other)
  Sender: BIOMARIN
  Company Number: EU-BIOMARINAP-DE-2024-158707

PATIENT
  Age: 4 Year
  Sex: Female

DRUGS (1)
  1. VOXZOGO [Suspect]
     Active Substance: VOSORITIDE
     Indication: Osteochondrodysplasia
     Dosage: UNK

REACTIONS (7)
  - Torticollis [Not Recovered/Not Resolved]
  - Juvenile idiopathic arthritis [Unknown]
  - Device malfunction [Recovering/Resolving]
  - Joint swelling [Unknown]
  - Joint stiffness [Unknown]
  - Joint effusion [Unknown]
  - Mobility decreased [Not Recovered/Not Resolved]

NARRATIVE: CASE EVENT DATE: 20231001
